FAERS Safety Report 17084045 (Version 1)
Quarter: 2019Q4

REPORT INFORMATION
  Report Type: Report from Study
  Country: TW (occurrence: TW)
  Receive Date: 20191127
  Receipt Date: 20191127
  Transmission Date: 20200122
  Serious: Yes (Hospitalization, Other)
  Sender: FDA-Public Use
  Company Number: TW-TOLMAR, INC.-19TW001091

PATIENT
  Age: 78 Year
  Sex: Male

DRUGS (4)
  1. TONEC [Concomitant]
     Indication: MUSCULOSKELETAL PAIN
     Dosage: 100 MG
     Route: 048
     Dates: start: 20180730, end: 20180827
  2. STILNOX [Concomitant]
     Active Substance: ZOLPIDEM TARTRATE
     Indication: MUSCULOSKELETAL PAIN
     Dosage: UNK
     Dates: start: 20180430, end: 20180528
  3. ELIGARD [Suspect]
     Active Substance: LEUPROLIDE ACETATE
     Indication: HORMONE-DEPENDENT PROSTATE CANCER
     Dosage: 22.5 MG Q 3 MONTHS
     Route: 058
     Dates: start: 20180430, end: 20190801
  4. THROUGH [Concomitant]
     Indication: MUSCULOSKELETAL PAIN
     Dosage: UNK
     Dates: start: 20180108, end: 20180528

REACTIONS (1)
  - Dyspnoea [Recovered/Resolved]

NARRATIVE: CASE EVENT DATE: 20180523
